FAERS Safety Report 20401460 (Version 1)
Quarter: 2022Q1

REPORT INFORMATION
  Report Type: Spontaneous
  Country: US (occurrence: US)
  Receive Date: 20220131
  Receipt Date: 20220131
  Transmission Date: 20220423
  Serious: No
  Sender: FDA-Public Use
  Company Number: US-AMGEN-USASP2022010535

PATIENT
  Sex: Male

DRUGS (2)
  1. MVASI [Suspect]
     Active Substance: BEVACIZUMAB-AWWB
     Indication: Hepatocellular carcinoma
     Dosage: UNK
     Route: 065
  2. MVASI [Suspect]
     Active Substance: BEVACIZUMAB-AWWB
     Dosage: UNK
     Route: 065

REACTIONS (2)
  - Laboratory test abnormal [Unknown]
  - Fatigue [Not Recovered/Not Resolved]
